FAERS Safety Report 21190829 (Version 4)
Quarter: 2023Q4

REPORT INFORMATION
  Report Type: Report from Study
  Country: US (occurrence: US)
  Receive Date: 20220809
  Receipt Date: 20231019
  Transmission Date: 20240109
  Serious: Yes (Hospitalization, Other)
  Sender: FDA-Public Use
  Company Number: US-BIOGEN-2022BI01146054

PATIENT
  Age: 35 Year
  Sex: Female
  Weight: 48.3 kg

DRUGS (12)
  1. TYSABRI [Suspect]
     Active Substance: NATALIZUMAB
     Indication: Graft versus host disease
     Route: 050
  2. PROGRAF [Suspect]
     Active Substance: TACROLIMUS
     Indication: Product used for unknown indication
     Route: 050
  3. PREDNISONE [Concomitant]
     Active Substance: PREDNISONE
     Indication: Acute graft versus host disease
     Route: 050
  4. PREDNISONE [Concomitant]
     Active Substance: PREDNISONE
     Route: 050
  5. PREDNISONE [Concomitant]
     Active Substance: PREDNISONE
     Route: 050
  6. PREDNISONE [Concomitant]
     Active Substance: PREDNISONE
     Route: 050
     Dates: start: 20180903
  7. PREDNISONE [Concomitant]
     Active Substance: PREDNISONE
     Route: 050
     Dates: start: 20180904
  8. PREDNISONE [Concomitant]
     Active Substance: PREDNISONE
     Route: 050
     Dates: start: 20180905
  9. PREDNISONE [Concomitant]
     Active Substance: PREDNISONE
     Route: 050
     Dates: start: 20180907
  10. PREDNISONE [Concomitant]
     Active Substance: PREDNISONE
     Route: 050
     Dates: start: 20180912
  11. PREDNISONE [Concomitant]
     Active Substance: PREDNISONE
     Route: 050
     Dates: start: 20180915
  12. PREDNISONE [Concomitant]
     Active Substance: PREDNISONE
     Route: 050
     Dates: start: 20180924

REACTIONS (4)
  - Clostridium difficile colitis [Recovered/Resolved]
  - Thrombotic microangiopathy [Recovered/Resolved]
  - Acute graft versus host disease [Recovered/Resolved]
  - Megacolon [Unknown]

NARRATIVE: CASE EVENT DATE: 20180726
